FAERS Safety Report 9607566 (Version 3)
Quarter: 2013Q4

REPORT INFORMATION
  Report Type: Report from Study
  Country: US (occurrence: US)
  Receive Date: 20131009
  Receipt Date: 20131028
  Transmission Date: 20140711
  Serious: Yes (Death)
  Sender: FDA-Public Use
  Company Number: PHEH2013US020992

PATIENT
  Age: 56 Year
  Sex: Male
  Weight: 69.8 kg

DRUGS (39)
  1. GLEEVEC [Suspect]
     Dosage: 100 MG, QD
     Route: 048
  2. TYLENOL [Concomitant]
     Indication: PAIN
     Dosage: 325-650 MG EVERY 4 HR AS NEEDED
     Route: 048
  3. PROVENTIL HFA [Concomitant]
     Dosage: 1-2 PUFFS EVERY 4 TO 6 HR AS NEEDED
     Route: 048
  4. VENTOLIN HFA [Concomitant]
     Dosage: 1-2 PUFFS EVERY 4 TO 6 HR AS NEEDED
  5. FOSAMAX [Concomitant]
     Dosage: 1 DF, EVERY SEVEN DAYS
     Route: 048
  6. BROVANA [Concomitant]
     Dosage: 15 UG, BID
  7. ZITHROMAX [Concomitant]
     Dosage: 250 MG, EVERY OTHER DAY
     Route: 048
  8. PULMICORT [Concomitant]
     Dosage: 0.5 MG, BID
  9. CALCIUM + D3 [Concomitant]
     Dosage: 1 DF, BID
     Route: 048
  10. DEBROX [Concomitant]
     Indication: CERUMEN IMPACTION
     Dosage: 4 DROPS IN RIGHT EAR TWO TIMES DAILY AS NEEDED
  11. CARBOXYMETHYLCELLULOSE SODIUM [Concomitant]
     Indication: DRY EYE
     Dosage: 2 DROPS N AFFECTED EYE EVERY 6 HR AS NEEDED
  12. EVOXAC [Concomitant]
     Indication: DRY MOUTH
     Dosage: 1 DF, TID AS NEEDED
     Route: 048
  13. DAPSONE [Concomitant]
     Dosage: 100 MG, QD
     Route: 048
  14. VALIUM [Concomitant]
     Dosage: 5 MG, AS DIRECTED (TAKE 1 TABLET 45 MINS PRIOOR TO DRESSING CHANGE
     Route: 048
  15. COLACE [Concomitant]
     Indication: CONSTIPATION
     Dosage: 100 MG, BID AS NEEDED
     Route: 048
  16. CYMBALTA [Concomitant]
     Dosage: 1 DF, QD
     Route: 048
  17. LOVENOX [Concomitant]
     Dosage: 80 MG, QD
  18. LOFIBRA//FENOFIBRATE [Concomitant]
     Dosage: 1 DF, QD
     Route: 048
  19. HEPARIN [Concomitant]
  20. PORCINE [Concomitant]
  21. LEVAQUIN [Concomitant]
     Dosage: 1 DF, QD
     Route: 048
  22. MAGNESIUM CHLORIDE [Concomitant]
     Dosage: 3 DF, TID
     Route: 048
  23. LOPRESSOR [Concomitant]
     Dosage: 0.5 TABLETS, BID
     Route: 048
  24. AQUAPHOR [Concomitant]
  25. MULTIVITAMIN [Concomitant]
     Dosage: 1 DF, QD
     Route: 048
  26. OMEGA 3 [Concomitant]
     Dosage: 2 DF, QD
     Route: 048
  27. PRILOSEC [Concomitant]
     Dosage: 1 DF, QD
     Route: 048
  28. OXYCODONE HCL [Concomitant]
     Indication: PAIN
     Dosage: 5-10 MG TABLETS EVERY 4 HR PRN
     Route: 048
  29. MIRALAX [Concomitant]
     Indication: CONSTIPATION
  30. POLYSORBATE 80 [Concomitant]
     Dosage: 2 DROPS IN AFFECTED EYE AS NEEDED
  31. GLYCERIN [Concomitant]
     Dosage: 2 DROPS IN AFFECTED EYE AS NEEDED
  32. PREDNISONE [Concomitant]
     Dosage: 15 MG, ONE AND A HALF 10 MG TABLET, DAILY
     Route: 048
  33. SENOKOT [Concomitant]
     Indication: CONSTIPATION
     Dosage: 8.6-17.2 MG QD AS NEEDED
     Route: 048
  34. SODIUM CHLORIDE [Concomitant]
     Indication: NASAL DRYNESS
     Dosage: 1-2 SPRAYS INTO NOSE EVERY 4 HR AS NEEDED
  35. PROGRAF [Concomitant]
     Dosage: 0.5 MG, EVERY 12 HR
     Route: 048
  36. FLOMAX [Concomitant]
     Dosage: 0.4 MG, QD
     Route: 048
  37. VALTREX [Concomitant]
     Dosage: 1 G, QD
     Route: 048
  38. VFEND [Concomitant]
     Dosage: 200 MG, BID
     Route: 048
  39. AMBIEN [Concomitant]
     Dosage: 12.5 MG, AT BEDTIME AS NEEDED
     Route: 048

REACTIONS (1)
  - Accidental death [Fatal]
